FAERS Safety Report 8280818-8 (Version None)
Quarter: 2012Q2

REPORT INFORMATION
  Report Type: 
  Country: None (occurrence: None)
  Receive Date: 20120412
  Receipt Date: 20120403
  Transmission Date: 20120825
  Serious: Yes (Hospitalization, Other)
  Sender: FDA-Public Use
  Company Number: DE-ABBOTT-12P-062-0914636-00

PATIENT
  Sex: Female

DRUGS (3)
  1. CORTISONE [Concomitant]
     Indication: PRODUCT USED FOR UNKNOWN INDICATION
  2. HUMIRA [Suspect]
     Indication: RHEUMATOID ARTHRITIS
     Route: 058
     Dates: start: 20080506
  3. METHOTREXATE [Concomitant]
     Indication: PRODUCT USED FOR UNKNOWN INDICATION

REACTIONS (6)
  - CONVALESCENT [None]
  - SPINAL OSTEOARTHRITIS [None]
  - CYSTITIS [None]
  - ACUTE PSYCHOSIS [None]
  - GASTROINTESTINAL VIRAL INFECTION [None]
  - IMMOBILE [None]
